FAERS Safety Report 7745791-7 (Version None)
Quarter: 2011Q3

REPORT INFORMATION
  Report Type: 
  Country: None (occurrence: None)
  Receive Date: 20110913
  Receipt Date: 20100610
  Transmission Date: 20111222
  Serious: No
  Sender: FDA-Public Use
  Company Number: US-BAYER-201027068NA

PATIENT
  Age: 34 Year
  Sex: Female

DRUGS (2)
  1. SUN BATH PROTECTIVE TANNING LOTION [Concomitant]
     Dosage: UNK
     Dates: start: 20100601
  2. MIRENA [Suspect]
     Indication: MENORRHAGIA
     Dosage: 20 ?G/D, CONT
     Route: 015
     Dates: start: 20071207

REACTIONS (1)
  - RASH MACULAR [None]
